FAERS Safety Report 19576692 (Version 1)
Quarter: 2021Q3

REPORT INFORMATION
  Report Type: Spontaneous
  Country: US (occurrence: US)
  Receive Date: 20210719
  Receipt Date: 20210719
  Transmission Date: 20211014
  Serious: No
  Sender: FDA-Public Use
  Company Number: None

PATIENT
  Age: 57 Year
  Sex: Male
  Weight: 83.46 kg

DRUGS (3)
  1. CARBAMAZEPINE (CARBAMAZEPINE 200MG TAB) [Suspect]
     Active Substance: CARBAMAZEPINE
     Indication: SCHIZOAFFECTIVE DISORDER
     Dates: start: 20201105, end: 20210415
  2. CARBAMAZEPINE (CARBAMAZEPINE 200MG TAB) [Suspect]
     Active Substance: CARBAMAZEPINE
     Indication: MANIA
     Dates: start: 20201105, end: 20210415
  3. CARBAMAZEPINE (CARBAMAZEPINE 200MG TAB) [Suspect]
     Active Substance: CARBAMAZEPINE
     Indication: BIPOLAR DISORDER
     Dates: start: 20201105, end: 20210415

REACTIONS (1)
  - Hepatic enzyme increased [None]

NARRATIVE: CASE EVENT DATE: 20210311
